FAERS Safety Report 6395195-7 (Version None)
Quarter: 2009Q4

REPORT INFORMATION
  Report Type: 
  Country: None (occurrence: None)
  Receive Date: 20091009
  Receipt Date: 20090929
  Transmission Date: 20100525
  Serious: Yes (Other)
  Sender: FDA-Public Use
  Company Number: IT-JNJFOC-20090908788

PATIENT
  Age: 58 Year
  Sex: Female

DRUGS (1)
  1. CAELYX [Suspect]
     Indication: OVARIAN CANCER
     Dosage: CYCLE IV
     Route: 042
     Dates: start: 20090925, end: 20090925

REACTIONS (2)
  - INFUSION RELATED REACTION [None]
  - LARYNGEAL OEDEMA [None]
